FAERS Safety Report 6166774-7 (Version None)
Quarter: 2009Q2

REPORT INFORMATION
  Report Type: 
  Country: None (occurrence: None)
  Receive Date: 20090424
  Receipt Date: 20090112
  Transmission Date: 20091009
  Serious: Yes (Other)
  Sender: FDA-Public Use
  Company Number: CA-PFIZER INC-2009155062

PATIENT

DRUGS (3)
  1. METFORMIN HCL [Suspect]
     Indication: GLUCOSE TOLERANCE IMPAIRED
  2. LIPITOR [Suspect]
     Indication: BLOOD CHOLESTEROL INCREASED
     Dosage: 10 MG, 1X/DAY
     Route: 048
     Dates: start: 20080101, end: 20080601
  3. ASPIRIN [Concomitant]

REACTIONS (6)
  - ABNORMAL BEHAVIOUR [None]
  - BLOOD CHOLESTEROL INCREASED [None]
  - EMOTIONAL DISORDER [None]
  - INSOMNIA [None]
  - PHYSICAL ASSAULT [None]
  - POLYURIA [None]
